FAERS Safety Report 20927706 (Version 1)
Quarter: 2022Q2

REPORT INFORMATION
  Report Type: Spontaneous
  Country: US (occurrence: US)
  Receive Date: 20220607
  Receipt Date: 20220607
  Transmission Date: 20220721
  Serious: No
  Sender: FDA-Public Use
  Company Number: US-PERRIGO-21US031577

PATIENT
  Sex: Male
  Weight: 90.703 kg

DRUGS (2)
  1. MINOXIDIL [Suspect]
     Active Substance: MINOXIDIL
     Indication: Alopecia
     Dosage: HALF CAPFUL, BID
     Route: 061
     Dates: start: 202105, end: 20211110
  2. AMLODIPINE [Concomitant]
     Active Substance: AMLODIPINE BESYLATE
     Indication: Hypertension
     Dosage: UNK
     Route: 065

REACTIONS (6)
  - Heart rate irregular [Unknown]
  - Dyspnoea [Unknown]
  - Application site acne [Unknown]
  - Application site scar [Not Recovered/Not Resolved]
  - Weight increased [Unknown]
  - Application site pain [Unknown]

NARRATIVE: CASE EVENT DATE: 20210101
